FAERS Safety Report 20612045 (Version 1)
Quarter: 2022Q1

REPORT INFORMATION
  Report Type: Spontaneous
  Country: US (occurrence: US)
  Receive Date: 20220318
  Receipt Date: 20220318
  Transmission Date: 20220423
  Serious: No
  Sender: FDA-Public Use
  Company Number: US-ABBVIE-22K-163-4273484-00

PATIENT
  Sex: Female

DRUGS (1)
  1. RINVOQ [Suspect]
     Active Substance: UPADACITINIB
     Indication: Product used for unknown indication
     Route: 048

REACTIONS (6)
  - Ankylosing spondylitis [Unknown]
  - Cauda equina syndrome [Unknown]
  - Pain [Unknown]
  - Anal incontinence [Unknown]
  - Bladder disorder [Unknown]
  - Screaming [Unknown]
